FAERS Safety Report 13891144 (Version 1)
Quarter: 2017Q3

REPORT INFORMATION
  Report Type: Spontaneous
  Country: FR (occurrence: FR)
  Receive Date: 20170822
  Receipt Date: 20170822
  Transmission Date: 20171127
  Serious: Yes (Hospitalization)
  Sender: FDA-Public Use
  Company Number: FR-SA-2017SA149929

PATIENT
  Age: 32 Year
  Sex: Female

DRUGS (6)
  1. RIMIFON [Concomitant]
     Active Substance: ISONIAZID
     Route: 065
     Dates: start: 20170307
  2. RIFINAH [Concomitant]
     Active Substance: ISONIAZID\RIFAMPIN
     Route: 065
     Dates: start: 20170320
  3. LEVOTHYROX [Suspect]
     Active Substance: LEVOTHYROXINE
     Route: 048
     Dates: start: 2017
  4. LEVOTHYROX [Suspect]
     Active Substance: LEVOTHYROXINE
     Route: 048
     Dates: start: 201605
  5. MYAMBUTOL [Concomitant]
     Active Substance: ETHAMBUTOL HYDROCHLORIDE
     Route: 048
     Dates: start: 20170402, end: 20170530
  6. RIFATER [Suspect]
     Active Substance: ISONIAZID\PYRAZINAMIDE\RIFAMPIN
     Route: 048
     Dates: start: 20170402, end: 20170530

REACTIONS (6)
  - Asthenia [Recovered/Resolved]
  - Generalised oedema [Recovered/Resolved]
  - Hypothyroidism [Recovered/Resolved]
  - Malaise [Recovered/Resolved]
  - Weight increased [Recovered/Resolved]
  - Blood thyroid stimulating hormone increased [Recovered/Resolved]

NARRATIVE: CASE EVENT DATE: 201705
